FAERS Safety Report 20234614 (Version 2)
Quarter: 2022Q1

REPORT INFORMATION
  Report Type: Spontaneous
  Country: CO (occurrence: CO)
  Receive Date: 20211227
  Receipt Date: 20220128
  Transmission Date: 20220423
  Serious: Yes (Other)
  Sender: FDA-Public Use
  Company Number: CO-PFIZER INC-202101218846

PATIENT
  Age: 60 Year
  Sex: Female

DRUGS (1)
  1. ENBREL [Suspect]
     Active Substance: ETANERCEPT
     Indication: Rheumatoid arthritis
     Dosage: 50 MG, SOMETIMES ON MONDAYS AND SOMETIMES ON TUESDAYS
     Route: 058

REACTIONS (6)
  - Sleep apnoea syndrome [Unknown]
  - Cardiomegaly [Unknown]
  - Swelling face [Unknown]
  - Tachycardia [Unknown]
  - Suspected COVID-19 [Unknown]
  - Headache [Unknown]
